FAERS Safety Report 19960599 (Version 2)
Quarter: 2021Q4

REPORT INFORMATION
  Report Type: Spontaneous
  Country: GR (occurrence: GR)
  Receive Date: 20211015
  Receipt Date: 20211019
  Transmission Date: 20220303
  Serious: Yes (Death)
  Sender: FDA-Public Use
  Company Number: GR-UCBSA-2021048342

PATIENT
  Age: 17 Year
  Sex: Female

DRUGS (1)
  1. LEVOCETIRIZINE [Suspect]
     Active Substance: LEVOCETIRIZINE
     Indication: Rhinitis allergic
     Dosage: UNK

REACTIONS (1)
  - Death [Fatal]
